FAERS Safety Report 10683232 (Version 1)
Quarter: 2014Q4

REPORT INFORMATION
  Report Type: Spontaneous
  Country: US (occurrence: US)
  Receive Date: 20141230
  Receipt Date: 20141230
  Transmission Date: 20150529
  Serious: Yes (Other)
  Sender: FDA-Public Use
  Company Number: US-BAYER-2014-190154

PATIENT
  Age: 38 Year
  Sex: Female

DRUGS (3)
  1. AVELOX [Interacting]
     Active Substance: MOXIFLOXACIN HYDROCHLORIDE
     Indication: UPPER RESPIRATORY TRACT INFECTION
     Dosage: UNK
     Dates: start: 20141203, end: 20141206
  2. TECFIDERA [Interacting]
     Active Substance: DIMETHYL FUMARATE
  3. BETASERON [Suspect]
     Active Substance: INTERFERON BETA-1B
     Indication: MULTIPLE SCLEROSIS
     Dosage: 0.25 MG, UNK
     Route: 058
     Dates: start: 2001

REACTIONS (8)
  - Pyrexia [Not Recovered/Not Resolved]
  - Abdominal pain [Not Recovered/Not Resolved]
  - Vomiting [None]
  - Drug ineffective [None]
  - Lethargy [Not Recovered/Not Resolved]
  - Nausea [None]
  - Upper respiratory tract infection [Not Recovered/Not Resolved]
  - Drug interaction [None]

NARRATIVE: CASE EVENT DATE: 201411
